FAERS Safety Report 15251400 (Version 1)
Quarter: 2018Q3

REPORT INFORMATION
  Report Type: Spontaneous
  Country: CA (occurrence: CA)
  Receive Date: 20180807
  Receipt Date: 20180807
  Transmission Date: 20181010
  Serious: Yes (Life-Threatening, Hospitalization)
  Sender: FDA-Public Use
  Company Number: CA-BAYER-2018-143479

PATIENT
  Age: 79 Year
  Sex: Male
  Weight: 72.56 kg

DRUGS (2)
  1. LOSARTAN. [Concomitant]
     Active Substance: LOSARTAN
     Dosage: UNK
  2. AVELOX [Suspect]
     Active Substance: MOXIFLOXACIN HYDROCHLORIDE
     Indication: UPPER RESPIRATORY TRACT INFECTION
     Dosage: 400 MG, QD
     Route: 048

REACTIONS (6)
  - Supraventricular extrasystoles [Recovering/Resolving]
  - Electrocardiogram QT prolonged [Recovering/Resolving]
  - Cardioversion [Recovering/Resolving]
  - Sudden cardiac death [Recovering/Resolving]
  - Resuscitation [Recovering/Resolving]
  - Extrasystoles [Recovering/Resolving]
